FAERS Safety Report 6282184-6 (Version None)
Quarter: 2009Q3

REPORT INFORMATION
  Report Type: 
  Country: None (occurrence: None)
  Receive Date: 20090724
  Receipt Date: 20090713
  Transmission Date: 20100115
  Serious: Yes (Hospitalization, Other)
  Sender: FDA-Public Use
  Company Number: IE-PFIZER INC-2009194105

PATIENT
  Age: 10 Year

DRUGS (1)
  1. GENOTROPIN [Suspect]
     Indication: PRADER-WILLI SYNDROME
     Dosage: 1.4 MG, 1X/DAY
     Route: 058
     Dates: start: 20081101, end: 20081201

REACTIONS (8)
  - ENURESIS [None]
  - HEADACHE [None]
  - INTRACRANIAL PRESSURE INCREASED [None]
  - PAPILLOEDEMA [None]
  - POLYDIPSIA [None]
  - RETINAL HAEMORRHAGE [None]
  - VISION BLURRED [None]
  - WEIGHT INCREASED [None]
